FAERS Safety Report 17603356 (Version 3)
Quarter: 2020Q3

REPORT INFORMATION
  Report Type: Spontaneous
  Country: US (occurrence: US)
  Receive Date: 20200331
  Receipt Date: 20200722
  Transmission Date: 20201102
  Serious: Yes (Hospitalization)
  Sender: FDA-Public Use
  Company Number: US-ROCHE-2572321

PATIENT
  Age: 76 Year
  Sex: Female

DRUGS (28)
  1. METRONIDAZOLE. [Concomitant]
     Active Substance: METRONIDAZOLE
  2. OMEPRAZOLE. [Concomitant]
     Active Substance: OMEPRAZOLE
  3. ESBRIET [Suspect]
     Active Substance: PIRFENIDONE
     Indication: IDIOPATHIC PULMONARY FIBROSIS
     Route: 048
     Dates: start: 20181006
  4. FOLBEE [Concomitant]
     Active Substance: CYANOCOBALAMIN\FOLIC ACID\PYRIDOXINE HYDROCHLORIDE
  5. METOPROLOL TARTRATE. [Concomitant]
     Active Substance: METOPROLOL TARTRATE
  6. BENZONATATE. [Concomitant]
     Active Substance: BENZONATATE
  7. FLUCONAZOLE. [Concomitant]
     Active Substance: FLUCONAZOLE
  8. LOSARTAN POTASSIUM. [Concomitant]
     Active Substance: LOSARTAN POTASSIUM
  9. ROSUVASTATIN. [Concomitant]
     Active Substance: ROSUVASTATIN
  10. BUSPIRONE [Concomitant]
     Active Substance: BUSPIRONE HYDROCHLORIDE
  11. CYCLOBENZAPRINE. [Concomitant]
     Active Substance: CYCLOBENZAPRINE
  12. ELIQUIS [Concomitant]
     Active Substance: APIXABAN
  13. ONDANSETRON [Concomitant]
     Active Substance: ONDANSETRON
  14. CYANOCOBALAMIN. [Concomitant]
     Active Substance: CYANOCOBALAMIN
  15. METHYLPREDNISOLONE. [Concomitant]
     Active Substance: METHYLPREDNISOLONE
  16. RHOPRESSA [Concomitant]
     Active Substance: NETARSUDIL MESYLATE
  17. URSODOL [Concomitant]
  18. KLOR?CON M10 [Concomitant]
     Active Substance: POTASSIUM CHLORIDE
  19. DILTIAZEM ER [Concomitant]
     Active Substance: DILTIAZEM
  20. ESBRIET [Suspect]
     Active Substance: PIRFENIDONE
     Dosage: ONGOING: YES
     Route: 048
     Dates: start: 20181006
  21. NITROGLYCERIN. [Concomitant]
     Active Substance: NITROGLYCERIN
  22. AZELASTINE. [Concomitant]
     Active Substance: AZELASTINE HYDROCHLORIDE
  23. BUMETANIDE. [Concomitant]
     Active Substance: BUMETANIDE
  24. CLINDAMYCIN. [Concomitant]
     Active Substance: CLINDAMYCIN
  25. LUMIGAN [Concomitant]
     Active Substance: BIMATOPROST
  26. POTASSIUM CHLORIDE. [Concomitant]
     Active Substance: POTASSIUM CHLORIDE
  27. BUMETANIDE. [Concomitant]
     Active Substance: BUMETANIDE
  28. DIGOXIN. [Concomitant]
     Active Substance: DIGOXIN

REACTIONS (4)
  - Nausea [Unknown]
  - Blood magnesium decreased [Unknown]
  - Heart rate increased [Unknown]
  - Product dose omission issue [Unknown]

NARRATIVE: CASE EVENT DATE: 20200620
